FAERS Safety Report 8587548-3 (Version None)
Quarter: 2012Q3

REPORT INFORMATION
  Report Type: 
  Country: None (occurrence: None)
  Receive Date: 20120810
  Receipt Date: 20120731
  Transmission Date: 20120928
  Serious: Yes (Other)
  Sender: FDA-Public Use
  Company Number: US-RB-043120-12

PATIENT
  Sex: Female

DRUGS (4)
  1. PHENERGAN HCL [Suspect]
     Indication: NAUSEA
     Dosage: PRN - AS NEEDED DOSAGE
     Route: 064
     Dates: end: 20120727
  2. SUBUTEX [Suspect]
     Indication: DRUG DEPENDENCE
     Route: 064
     Dates: start: 20111001, end: 20120727
  3. ZANTAC [Suspect]
     Indication: GASTROOESOPHAGEAL REFLUX DISEASE
     Route: 064
     Dates: end: 20120727
  4. MULTI-VITAMINS [Suspect]
     Indication: PREGNANCY
     Dosage: UNKNOWN DOSAGE
     Route: 064
     Dates: end: 20120727

REACTIONS (3)
  - LOW BIRTH WEIGHT BABY [None]
  - FOETAL EXPOSURE DURING PREGNANCY [None]
  - DRUG WITHDRAWAL SYNDROME NEONATAL [None]
